FAERS Safety Report 17873502 (Version 2)
Quarter: 2020Q3

REPORT INFORMATION
  Report Type: Spontaneous
  Country: DE (occurrence: DE)
  Receive Date: 20200609
  Receipt Date: 20200715
  Transmission Date: 20201103
  Serious: Yes (Congenital Anomaly, Other)
  Sender: FDA-Public Use
  Company Number: DE-TEVA-2020-DE-1244566

PATIENT
  Age: 0 Year
  Sex: Male
  Weight: 3.62 kg

DRUGS (10)
  1. UTROGEST [Suspect]
     Active Substance: PROGESTERONE
     Indication: INFERTILITY FEMALE
     Route: 064
  2. CYTOTEC [Concomitant]
     Active Substance: MISOPROSTOL
     Indication: LABOUR INDUCTION
     Route: 064
  3. ADVANTAN [Concomitant]
     Active Substance: METHYLPREDNISOLONE ACEPONATE
     Indication: ECZEMA
     Route: 064
  4. GYNOKADIN GEL [ESTRADIOL] [Suspect]
     Active Substance: ESTRADIOL
     Indication: INFERTILITY FEMALE
     Route: 064
  5. ASS 100 [Concomitant]
     Active Substance: ASPIRIN
     Indication: PROPHYLAXIS
     Dosage: 100 MILLIGRAM DAILY; 100 [MG/D ]
     Route: 064
  6. NYSTALOCAL [Concomitant]
     Indication: PITYRIASIS ROSEA
     Route: 064
     Dates: start: 20190315, end: 20190420
  7. METFORMIN [Suspect]
     Active Substance: METFORMIN HYDROCHLORIDE
     Indication: GLUCOSE TOLERANCE IMPAIRED
     Dosage: 1500 [MG/D (3X500 MG) ] 3 SEPARATED DOSES
     Route: 064
     Dates: start: 20181221, end: 20191002
  8. PROLUTEX 25 MG INJEKTIONSLOSUNG [Suspect]
     Active Substance: PROGESTERONE
     Indication: INFERTILITY FEMALE
     Dosage: 50 MG [MG/D (2X25 MG) ] 2 SEPARATED DOSES
     Route: 064
  9. L?THYROXIN [Concomitant]
     Active Substance: LEVOTHYROXINE SODIUM
     Indication: HYPOTHYROIDISM
     Dosage: 62.5 MICROGRAM DAILY; 62.5 [UG/D ]
     Route: 064
     Dates: start: 20181221, end: 20191002
  10. PROGYNOVA [Suspect]
     Active Substance: ESTRADIOL VALERATE
     Indication: INFERTILITY FEMALE
     Dosage: THREE TABLETS PER DAY, 3 DF
     Route: 064

REACTIONS (3)
  - Atrial septal defect [Unknown]
  - Congenital coronary artery malformation [Unknown]
  - Foetal exposure during pregnancy [Unknown]
